FAERS Safety Report 18067218 (Version 1)
Quarter: 2020Q3

REPORT INFORMATION
  Report Type: Spontaneous
  Country: US (occurrence: US)
  Receive Date: 20200724
  Receipt Date: 20200724
  Transmission Date: 20201103
  Serious: Yes (Other)
  Sender: FDA-Public Use
  Company Number: US-ASTRAZENECA-2020SE91292

PATIENT
  Age: 77 Year
  Sex: Female
  Weight: 53.5 kg

DRUGS (1)
  1. SYMBICORT [Suspect]
     Active Substance: BUDESONIDE\FORMOTEROL FUMARATE DIHYDRATE
     Indication: BRONCHITIS CHRONIC
     Dosage: 160/4.5MCG TWO PUFFS TWICE DAILY
     Route: 055

REACTIONS (8)
  - Dyspnoea [Recovered/Resolved]
  - Intentional product misuse [Not Recovered/Not Resolved]
  - Product dose omission issue [Recovered/Resolved]
  - Device issue [Unknown]
  - Pulmonary fibrosis [Not Recovered/Not Resolved]
  - Asthenia [Unknown]
  - Wrong technique in product usage process [Not Recovered/Not Resolved]
  - Intentional device misuse [Not Recovered/Not Resolved]

NARRATIVE: CASE EVENT DATE: 2020
